FAERS Safety Report 7292629-0 (Version None)
Quarter: 2011Q1

REPORT INFORMATION
  Report Type: 
  Country: None (occurrence: None)
  Receive Date: 20110215
  Receipt Date: 20110214
  Transmission Date: 20110831
  Serious: No
  Sender: FDA-Public Use
  Company Number: US-JNJFOC-20110200709

PATIENT
  Sex: Male
  Weight: 98.88 kg

DRUGS (4)
  1. UNKNOWN MEDICATION [Concomitant]
     Route: 065
  2. FENTANYL-100 [Suspect]
     Indication: PAIN IN EXTREMITY
     Dosage: 12.5 AND 25 MCG
     Route: 062
  3. FENTANYL-100 [Suspect]
     Dosage: 12.5 AND 25 MCG
     Route: 062
  4. FENTANYL-100 [Suspect]
     Indication: ARTHRALGIA
     Dosage: 12.5 AND 25 MCG
     Route: 062

REACTIONS (2)
  - PRODUCT QUALITY ISSUE [None]
  - TREATMENT NONCOMPLIANCE [None]
